APPROVED DRUG PRODUCT: COLPREP KIT
Active Ingredient: MAGNESIUM SULFATE; POTASSIUM SULFATE; SODIUM SULFATE
Strength: 1.6GM/BOT;3.13GM/BOT;17.5GM/BOT
Dosage Form/Route: POWDER;ORAL
Application: N204553 | Product #001
Applicant: GATOR PHARMACEUTICALS INC
Approved: Dec 27, 2016 | RLD: Yes | RS: No | Type: DISCN